FAERS Safety Report 5881872-0 (Version None)
Quarter: 2008Q3

REPORT INFORMATION
  Report Type: 
  Country: None (occurrence: None)
  Receive Date: 20080912
  Receipt Date: 20080717
  Transmission Date: 20090109
  Serious: No
  Sender: FDA-Public Use
  Company Number: US-ABBOTT-08P-163-0464016-00

PATIENT
  Sex: Female
  Weight: 77.18 kg

DRUGS (13)
  1. HUMIRA [Suspect]
     Indication: PSORIATIC ARTHROPATHY
     Route: 058
     Dates: start: 20080618
  2. SERETIDE [Concomitant]
     Indication: ASTHMA
     Dosage: 250/50 TWICE DAILY
     Route: 055
     Dates: start: 20070101
  3. LOSARTAN POTASSIUM [Concomitant]
     Indication: HYPERTENSION
     Route: 048
     Dates: start: 20030101
  4. OXYCODONE HCL [Concomitant]
     Indication: PAIN
     Dosage: 10/5
     Route: 048
     Dates: start: 20080130
  5. FOLIC ACID [Concomitant]
     Indication: VITAMIN SUPPLEMENTATION
     Route: 048
     Dates: start: 20080201
  6. METHOTREXATE [Concomitant]
     Indication: PSORIATIC ARTHROPATHY
     Route: 048
     Dates: start: 20080201
  7. ESZOPICLONE [Concomitant]
     Indication: INSOMNIA
     Dosage: 2MG NIGHTLY
     Route: 048
     Dates: start: 20030101
  8. YAZ [Concomitant]
     Indication: CONTRACEPTION
     Route: 048
     Dates: start: 20030101
  9. PREDNISONE TAB [Concomitant]
     Indication: PSORIATIC ARTHROPATHY
     Dosage: 5MG IN AM AND 2.5MG IN PM
     Route: 048
     Dates: start: 20080301
  10. DYAZIDE [Concomitant]
     Indication: HYPERTENSION
     Dosage: 37.5/25MG
     Route: 048
     Dates: start: 19990101
  11. QUETIAPINE [Concomitant]
     Indication: SLEEP DISORDER THERAPY
     Dosage: 25MG NIGHTLY
     Route: 048
     Dates: start: 20070101
  12. SERTRALINE [Concomitant]
     Indication: DEPRESSION
     Route: 048
     Dates: start: 20061201
  13. ACETYLSALICYLIC ACID SRT [Concomitant]
     Indication: CARDIOVASCULAR EVENT PROPHYLAXIS
     Route: 048
     Dates: start: 19980101

REACTIONS (2)
  - LYMPH NODE PAIN [None]
  - LYMPHADENOPATHY [None]
